FAERS Safety Report 16061875 (Version 1)
Quarter: 2019Q1

REPORT INFORMATION
  Report Type: Spontaneous
  Country: AU (occurrence: AU)
  Receive Date: 20190312
  Receipt Date: 20190312
  Transmission Date: 20190418
  Serious: Yes (Death)
  Sender: FDA-Public Use
  Company Number: AU-ROCHE-2280238

PATIENT
  Age: 62 Year
  Sex: Female

DRUGS (2)
  1. CIDOFOVIR. [Suspect]
     Active Substance: CIDOFOVIR
     Indication: IMMUNOSUPPRESSION
     Route: 065
  2. GANCICLOVIR. [Suspect]
     Active Substance: GANCICLOVIR
     Indication: ANTIVIRAL TREATMENT
     Route: 065

REACTIONS (1)
  - Drug resistance [Fatal]
